FAERS Safety Report 6466699-3 (Version None)
Quarter: 2009Q4

REPORT INFORMATION
  Report Type: 
  Country: None (occurrence: None)
  Receive Date: 20091202
  Receipt Date: 20091124
  Transmission Date: 20100525
  Serious: Yes (Hospitalization, Other)
  Sender: FDA-Public Use
  Company Number: US-AMGEN-QUU376700

PATIENT
  Sex: Female

DRUGS (1)
  1. ENBREL [Suspect]
     Indication: RHEUMATOID ARTHRITIS
     Route: 058

REACTIONS (11)
  - ABDOMINAL DISCOMFORT [None]
  - ANGINA PECTORIS [None]
  - ARRHYTHMIA [None]
  - ARTHRALGIA [None]
  - BACK PAIN [None]
  - FATIGUE [None]
  - NEURALGIA [None]
  - PAIN IN JAW [None]
  - PERICARDIAL EFFUSION [None]
  - TACHYCARDIA [None]
  - URINE ODOUR ABNORMAL [None]
